FAERS Safety Report 5207425-5 (Version None)
Quarter: 2006Q4

REPORT INFORMATION
  Report Type: 
  Country: None (occurrence: None)
  Receive Date: 20061027
  Receipt Date: 20060626
  Transmission Date: 20070319
  Serious: Yes (Other)
  Sender: FDA-Public Use
  Company Number: HQWYE409127JUN06

PATIENT
  Age: 48 Year
  Sex: Female

DRUGS (2)
  1. PREMARIN [Suspect]
     Indication: MENOPAUSE
     Dosage: 0.3 MG 1X PER 1 DAY, ORAL; 0.625 MG 1X PER 1 DAY, ORAL
     Route: 048
     Dates: start: 20010101, end: 20060501
  2. PREMARIN [Suspect]
     Indication: MENOPAUSE
     Dosage: 0.3 MG 1X PER 1 DAY, ORAL; 0.625 MG 1X PER 1 DAY, ORAL
     Route: 048
     Dates: start: 20060501

REACTIONS (1)
  - THROMBOPHLEBITIS SUPERFICIAL [None]
